FAERS Safety Report 12686894 (Version 1)
Quarter: 2016Q3

REPORT INFORMATION
  Report Type: Spontaneous
  Country: US (occurrence: US)
  Receive Date: 20160825
  Receipt Date: 20160825
  Transmission Date: 20161109
  Serious: No
  Sender: FDA-Public Use
  Company Number: US-JAZZ-2016-US-007163

PATIENT
  Sex: Female

DRUGS (23)
  1. ASPIRIN EC [Concomitant]
     Active Substance: ASPIRIN
  2. ESTRACE [Concomitant]
     Active Substance: ESTRADIOL
  3. FLAGYL [Concomitant]
     Active Substance: METRONIDAZOLE\METRONIDAZOLE HYDROCHLORIDE
  4. MACROBID [Concomitant]
     Active Substance: NITROFURANTOIN\NITROFURANTOIN MONOHYDRATE
  5. METRONIDAZOLE. [Concomitant]
     Active Substance: METRONIDAZOLE
  6. VITAMIN D3 [Concomitant]
     Active Substance: CHOLECALCIFEROL
  7. XYREM [Suspect]
     Active Substance: SODIUM OXYBATE
     Dosage: 2.5 G, BID
     Route: 048
     Dates: start: 2016, end: 2016
  8. XYREM [Suspect]
     Active Substance: SODIUM OXYBATE
     Dosage: 2 G, BID
     Route: 048
     Dates: start: 2016
  9. COENZYME Q10 [Concomitant]
     Active Substance: UBIDECARENONE
  10. XYREM [Suspect]
     Active Substance: SODIUM OXYBATE
     Dosage: 2.75 G, SECOND DOSE
     Route: 048
     Dates: start: 2016, end: 2016
  11. NASONEX [Concomitant]
     Active Substance: MOMETASONE FUROATE
  12. PREVACID [Concomitant]
     Active Substance: LANSOPRAZOLE
  13. XYREM [Suspect]
     Active Substance: SODIUM OXYBATE
     Indication: NARCOLEPSY
     Dosage: 2.25 G, BID
     Route: 048
     Dates: start: 201602, end: 201602
  14. RITALIN [Concomitant]
     Active Substance: METHYLPHENIDATE HYDROCHLORIDE
  15. ZOFRAN [Concomitant]
     Active Substance: ONDANSETRON HYDROCHLORIDE
  16. LUNESTA [Concomitant]
     Active Substance: ESZOPICLONE
  17. PROVIGIL [Concomitant]
     Active Substance: MODAFINIL
  18. RITALIN LA [Concomitant]
     Active Substance: METHYLPHENIDATE HYDROCHLORIDE
  19. XYREM [Suspect]
     Active Substance: SODIUM OXYBATE
     Dosage: 2.5 G, FIRST DOSE
     Route: 048
     Dates: start: 2016, end: 2016
  20. ZANTAC [Concomitant]
     Active Substance: RANITIDINE HYDROCHLORIDE
  21. MAGNESIUM OXIDE. [Concomitant]
     Active Substance: MAGNESIUM OXIDE
  22. PROPRANOLOL [Concomitant]
     Active Substance: PROPRANOLOL\PROPRANOLOL HYDROCHLORIDE
  23. XYREM [Suspect]
     Active Substance: SODIUM OXYBATE
     Dosage: DOSE ADJUSTMENTS
     Route: 048
     Dates: start: 201602, end: 2016

REACTIONS (2)
  - Feeling abnormal [Unknown]
  - Confusional state [Not Recovered/Not Resolved]

NARRATIVE: CASE EVENT DATE: 2016
